FAERS Safety Report 7191467-7 (Version None)
Quarter: 2010Q4

REPORT INFORMATION
  Report Type: 
  Country: None (occurrence: None)
  Receive Date: 20101223
  Receipt Date: 20101217
  Transmission Date: 20110411
  Serious: Yes (Other)
  Sender: FDA-Public Use
  Company Number: US-ROCHE-749111

PATIENT
  Sex: Female

DRUGS (1)
  1. XELODA [Suspect]
     Dosage: 1000 MG IN THE MORNING AND 500 MG IN THE EVENING
     Route: 065
     Dates: end: 20091201

REACTIONS (1)
  - TUMOUR MARKER INCREASED [None]
